FAERS Safety Report 9889384 (Version 2)
Quarter: 2014Q1

REPORT INFORMATION
  Report Type: Spontaneous
  Country: JP (occurrence: JP)
  Receive Date: 20140211
  Receipt Date: 20140220
  Transmission Date: 20141002
  Serious: Yes (Hospitalization)
  Sender: FDA-Public Use
  Company Number: JP-009507513-1402JPN004769

PATIENT
  Sex: 0

DRUGS (1)
  1. JANUVIA TABLETS 12.5MG [Suspect]
     Indication: TYPE 1 DIABETES MELLITUS
     Dosage: DAILY DOSE UNKNOWN
     Route: 048

REACTIONS (3)
  - Adverse event [Unknown]
  - Diabetes mellitus [Unknown]
  - Off label use [Unknown]
